FAERS Safety Report 25901542 (Version 2)
Quarter: 2025Q4

REPORT INFORMATION
  Report Type: Spontaneous
  Country: US (occurrence: None)
  Receive Date: 20251009
  Receipt Date: 20251110
  Transmission Date: 20260118
  Serious: Yes (Other)
  Sender: UCB
  Company Number: US-UCBSA-2025062646

PATIENT

DRUGS (1)
  1. BIMZELX [Suspect]
     Active Substance: BIMEKIZUMAB-BKZX
     Indication: Psoriatic arthropathy
     Dosage: 160 MILLIGRAM, EV 4 WEEKS

REACTIONS (5)
  - Psoriatic arthropathy [Recovering/Resolving]
  - Ligament sprain [Recovering/Resolving]
  - Fungal infection [Not Recovered/Not Resolved]
  - Eye infection staphylococcal [Not Recovered/Not Resolved]
  - Drug ineffective [Unknown]
